FAERS Safety Report 7125016-6 (Version None)
Quarter: 2010Q4

REPORT INFORMATION
  Report Type: 
  Country: None (occurrence: None)
  Receive Date: 20101129
  Receipt Date: 20101118
  Transmission Date: 20110411
  Serious: Yes (Other)
  Sender: FDA-Public Use
  Company Number: US-JNJFOC-20101106847

PATIENT
  Sex: Female
  Weight: 50.35 kg

DRUGS (7)
  1. REMICADE [Suspect]
     Indication: RHEUMATOID ARTHRITIS
     Route: 042
  2. FOLIC ACID [Concomitant]
  3. DAYPRO [Concomitant]
  4. METHOTREXATE [Concomitant]
  5. CALCIUM [Concomitant]
  6. MULTI-VITAMINS [Concomitant]
  7. AMLODIPINE [Concomitant]

REACTIONS (1)
  - MULTIPLE MYELOMA [None]
